FAERS Safety Report 5413847-X (Version None)
Quarter: 2007Q3

REPORT INFORMATION
  Report Type: 
  Country: None (occurrence: None)
  Receive Date: 20070814
  Receipt Date: 20070404
  Transmission Date: 20080115
  Serious: No
  Sender: FDA-Public Use
  Company Number: US-BRISTOL-MYERS SQUIBB COMPANY-13738893

PATIENT
  Age: 47 Year
  Sex: Male
  Weight: 107 kg

DRUGS (2)
  1. REYATAZ [Suspect]
     Indication: HIV INFECTION
  2. COMBIVIR [Concomitant]

REACTIONS (1)
  - DYSPNOEA EXERTIONAL [None]
